FAERS Safety Report 11880222 (Version 4)
Quarter: 2016Q2

REPORT INFORMATION
  Report Type: Spontaneous
  Country: DE (occurrence: DE)
  Receive Date: 20151230
  Receipt Date: 20160404
  Transmission Date: 20160815
  Serious: Yes (Other)
  Sender: FDA-Public Use
  Company Number: DE-BAYER-2015-498248

PATIENT
  Age: 45 Year
  Sex: Female

DRUGS (2)
  1. CIPROFLOXACIN. [Suspect]
     Active Substance: CIPROFLOXACIN
     Indication: DYSURIA
     Dosage: 500 MG, BID
  2. DULOXETINE. [Interacting]
     Active Substance: DULOXETINE
     Indication: TENSION HEADACHE
     Dosage: 60 MG, UNK

REACTIONS (6)
  - Labelled drug-drug interaction medication error [None]
  - Serotonin syndrome [None]
  - Confusional state [None]
  - Hyperhidrosis [None]
  - Tremor [None]
  - Restlessness [None]
